FAERS Safety Report 24784261 (Version 1)
Quarter: 2024Q4

REPORT INFORMATION
  Report Type: Spontaneous
  Country: US (occurrence: None)
  Receive Date: 20241227
  Receipt Date: 20241227
  Transmission Date: 20250114
  Serious: Yes (Hospitalization)
  Sender: Public
  Company Number: None

PATIENT
  Sex: Female

DRUGS (1)
  1. IBRANCE [Suspect]
     Active Substance: PALBOCICLIB
     Indication: Breast cancer
     Dosage: OTHER FREQUENCY : DAILY 21/28 DAYS;?
     Route: 048
     Dates: start: 202305

REACTIONS (3)
  - Haematemesis [None]
  - Haemoptysis [None]
  - Alopecia [None]
